FAERS Safety Report 6173133-X (Version None)
Quarter: 2009Q2

REPORT INFORMATION
  Report Type: 
  Country: None (occurrence: None)
  Receive Date: 20090430
  Receipt Date: 20090420
  Transmission Date: 20091009
  Serious: Yes (Other)
  Sender: FDA-Public Use
  Company Number: GB-PFIZER INC-2009200298

PATIENT

DRUGS (1)
  1. CHAMPIX [Suspect]
     Indication: SMOKING CESSATION THERAPY
     Dosage: UNK
     Route: 048
     Dates: start: 20090307, end: 20090319

REACTIONS (4)
  - DEPRESSED MOOD [None]
  - DEPRESSION [None]
  - EMOTIONAL DISTRESS [None]
  - TEARFULNESS [None]
